FAERS Safety Report 5903017-0 (Version None)
Quarter: 2008Q3

REPORT INFORMATION
  Report Type: 
  Country: None (occurrence: None)
  Receive Date: 20080930
  Receipt Date: 20080922
  Transmission Date: 20090109
  Serious: Yes (Hospitalization, Other)
  Sender: FDA-Public Use
  Company Number: US-AMGEN-QUU309307

PATIENT
  Sex: Male

DRUGS (1)
  1. ENBREL [Suspect]
     Indication: RHEUMATOID ARTHRITIS
     Route: 058

REACTIONS (5)
  - FALL [None]
  - HYPOAESTHESIA [None]
  - INJECTION SITE IRRITATION [None]
  - MUSCULAR WEAKNESS [None]
  - SPINAL FUSION SURGERY [None]
